FAERS Safety Report 8335208-6 (Version None)
Quarter: 2012Q2

REPORT INFORMATION
  Report Type: 
  Country: None (occurrence: None)
  Receive Date: 20120503
  Receipt Date: 20120422
  Transmission Date: 20120825
  Serious: No
  Sender: FDA-Public Use
  Company Number: US-BAYER-2012-040734

PATIENT
  Age: 55 Year
  Sex: Female
  Weight: 108 kg

DRUGS (7)
  1. CITALOPRAM HYDROBROMIDE [Concomitant]
  2. CYMBALTA [Concomitant]
  3. CRESTOR [Concomitant]
  4. DIOVAN [Concomitant]
  5. VITAMIN D [Concomitant]
  6. TRICOR [Concomitant]
  7. NAPROXEN (ALEVE) [Suspect]
     Indication: BACK PAIN
     Route: 048

REACTIONS (4)
  - ABDOMINAL PAIN UPPER [None]
  - MEDICATION ERROR [None]
  - DIZZINESS [None]
  - MUSCULAR WEAKNESS [None]
